FAERS Safety Report 21119356 (Version 3)
Quarter: 2023Q1

REPORT INFORMATION
  Report Type: Report from Study
  Country: US (occurrence: US)
  Receive Date: 20220722
  Receipt Date: 20230304
  Transmission Date: 20230418
  Serious: Yes (Other)
  Sender: FDA-Public Use
  Company Number: US-NOVARTISPH-NVSC2022US164299

PATIENT
  Sex: Female

DRUGS (1)
  1. COSENTYX [Suspect]
     Active Substance: SECUKINUMAB
     Indication: Psoriasis
     Dosage: 300 MG, QW  (EVERY WEEK FOR 5 WEEKS THEN EVERY 4)
     Route: 058
     Dates: start: 202202

REACTIONS (3)
  - Skin cancer [Unknown]
  - Arthralgia [Unknown]
  - Drug ineffective [Unknown]
